FAERS Safety Report 18059211 (Version 5)
Quarter: 2021Q2

REPORT INFORMATION
  Report Type: Spontaneous
  Country: US (occurrence: US)
  Receive Date: 20200723
  Receipt Date: 20210412
  Transmission Date: 20210717
  Serious: Yes (Hospitalization, Other)
  Sender: FDA-Public Use
  Company Number: US-PFIZER INC-2020279639

PATIENT
  Age: 69 Year
  Sex: Female

DRUGS (1)
  1. LYRICA [Suspect]
     Active Substance: PREGABALIN
     Dosage: UNK

REACTIONS (9)
  - COVID-19 [Unknown]
  - Oxygen saturation decreased [Unknown]
  - Intentional product misuse [Unknown]
  - Illness [Unknown]
  - Thinking abnormal [Unknown]
  - Pneumonia [Unknown]
  - Fall [Unknown]
  - Blood glucose increased [Unknown]
  - Skin laceration [Unknown]
